FAERS Safety Report 7081928-3 (Version None)
Quarter: 2010Q4

REPORT INFORMATION
  Report Type: 
  Country: None (occurrence: None)
  Receive Date: 20101103
  Receipt Date: 20101026
  Transmission Date: 20110411
  Serious: Yes (Other)
  Sender: FDA-Public Use
  Company Number: US-PFIZER INC-2010122649

PATIENT
  Sex: Female
  Weight: 73.2 kg

DRUGS (5)
  1. CHANTIX [Suspect]
     Indication: SMOKING CESSATION THERAPY
     Dosage: 0.5 MG, 1X/DAY
     Route: 048
     Dates: start: 20100910, end: 20100928
  2. NICOTINE POLACRILEX [Concomitant]
     Dosage: UNK
     Dates: start: 20100908, end: 20100901
  3. PROMETHAZINE [Concomitant]
     Indication: NAUSEA
     Dosage: 25 MG, 1X/DAY
  4. BENTYL [Concomitant]
     Dosage: 20 MG, 4X/DAY
  5. EVENING PRIMROSE OIL [Concomitant]
     Dosage: 500 MG, 1X/DAY

REACTIONS (10)
  - ANXIETY [None]
  - CRYING [None]
  - DIZZINESS [None]
  - EMOTIONAL DISORDER [None]
  - FATIGUE [None]
  - HEADACHE [None]
  - IRRITABILITY [None]
  - NAUSEA [None]
  - SUICIDAL IDEATION [None]
  - VOMITING [None]
